FAERS Safety Report 5870773-X (Version None)
Quarter: 2008Q3

REPORT INFORMATION
  Report Type: 
  Country: None (occurrence: None)
  Receive Date: 20080904
  Receipt Date: 20080821
  Transmission Date: 20090109
  Serious: No
  Sender: FDA-Public Use
  Company Number: ZA-ELI_LILLY_AND_COMPANY-ZA200808000190

PATIENT
  Age: 53 Year
  Sex: Female

DRUGS (3)
  1. CYMBALTA [Suspect]
     Dosage: 60 MG, DAILY (1/D)
     Route: 048
     Dates: start: 20040101, end: 20080701
  2. CYMBALTA [Suspect]
     Dosage: UNK, UNKNOWN
     Route: 065
  3. TOPAMAX [Concomitant]
     Dosage: 75 MG, EACH EVENING
     Route: 048

REACTIONS (3)
  - ABDOMINAL PAIN [None]
  - HEPATIC ENZYME ABNORMAL [None]
  - WEIGHT DECREASED [None]
